FAERS Safety Report 24365234 (Version 1)
Quarter: 2024Q3

REPORT INFORMATION
  Report Type: Report from Study
  Country: US (occurrence: US)
  Receive Date: 20240926
  Receipt Date: 20240926
  Transmission Date: 20241016
  Serious: Yes (Other)
  Sender: ABBVIE
  Company Number: US-ABBVIE-5933110

PATIENT
  Sex: Female

DRUGS (1)
  1. RINVOQ [Suspect]
     Active Substance: UPADACITINIB
     Indication: Dermatitis atopic
     Route: 048
     Dates: start: 20220922

REACTIONS (4)
  - Hip arthroplasty [Unknown]
  - Post procedural sepsis [Unknown]
  - Staphylococcal infection [Unknown]
  - Illness [Unknown]

NARRATIVE: CASE EVENT DATE: 20240101
